FAERS Safety Report 24193090 (Version 3)
Quarter: 2024Q4

REPORT INFORMATION
  Report Type: Report from Study
  Country: BE (occurrence: BE)
  Receive Date: 20240809
  Receipt Date: 20241014
  Transmission Date: 20250114
  Serious: Yes (Death, Other)
  Sender: CSL BEHRING
  Company Number: BE-BEH-2024176713

PATIENT
  Sex: Male

DRUGS (2)
  1. HIZENTRA [Suspect]
     Active Substance: HUMAN IMMUNOGLOBULIN G
     Indication: Primary immunodeficiency syndrome
     Dosage: UNK UNK, QW
     Route: 058
  2. HIZENTRA [Suspect]
     Active Substance: HUMAN IMMUNOGLOBULIN G
     Indication: Secondary immunodeficiency

REACTIONS (3)
  - Death [Fatal]
  - Cardiac failure [Unknown]
  - Liver disorder [Unknown]
